FAERS Safety Report 19800769 (Version 1)
Quarter: 2021Q3

REPORT INFORMATION
  Report Type: Spontaneous
  Country: US (occurrence: US)
  Receive Date: 20210907
  Receipt Date: 20210907
  Transmission Date: 20211014
  Serious: No
  Sender: FDA-Public Use
  Company Number: US-PERRIGO-20US017773

PATIENT
  Age: 40 Year
  Sex: Female
  Weight: 72.56 kg

DRUGS (2)
  1. XELODA [Concomitant]
     Active Substance: CAPECITABINE
     Indication: BREAST CANCER
     Dosage: UNKNOWN, UNKNOWN
     Route: 065
     Dates: start: 2020
  2. TRIAMCINOLONE ACETONIDE. [Suspect]
     Active Substance: TRIAMCINOLONE ACETONIDE
     Indication: NASAL DRYNESS
     Dosage: 220 TO 275 MCG IN EACH NOSTRIL, 6 TIMES A DAY
     Route: 045
     Dates: start: 20201113, end: 20201122

REACTIONS (3)
  - Off label use [Recovered/Resolved]
  - Overdose [Recovered/Resolved]
  - Ageusia [Not Recovered/Not Resolved]

NARRATIVE: CASE EVENT DATE: 20201113
